FAERS Safety Report 7412988-5 (Version None)
Quarter: 2011Q2

REPORT INFORMATION
  Report Type: 
  Country: None (occurrence: None)
  Receive Date: 20110413
  Receipt Date: 20110406
  Transmission Date: 20111010
  Serious: Yes (Hospitalization)
  Sender: FDA-Public Use
  Company Number: AT-MERCK-1103AUT00025

PATIENT
  Sex: Female

DRUGS (8)
  1. HYDROCORTONE [Suspect]
     Route: 048
     Dates: start: 20110203, end: 20110223
  2. HYDROCORTISONE [Concomitant]
     Route: 048
     Dates: start: 20110301, end: 20110323
  3. HYDROCORTONE [Suspect]
     Route: 048
     Dates: start: 20110125, end: 20110202
  4. HYDROCORTISONE [Concomitant]
     Route: 048
     Dates: start: 20110201, end: 20110228
  5. HYDROCORTISONE [Concomitant]
     Route: 048
     Dates: start: 20110324
  6. HYDROCORTONE [Suspect]
     Route: 048
     Dates: start: 20110224, end: 20110201
  7. HYDROCORTONE [Concomitant]
     Route: 041
     Dates: start: 20110120, end: 20110124
  8. HYDROCORTONE [Suspect]
     Indication: ADDISON'S DISEASE
     Route: 048
     Dates: start: 20100101, end: 20110119

REACTIONS (2)
  - DRUG INEFFECTIVE [None]
  - ADRENOCORTICAL INSUFFICIENCY ACUTE [None]
